FAERS Safety Report 17003863 (Version 2)
Quarter: 2019Q4

REPORT INFORMATION
  Report Type: Report from Study
  Country: US (occurrence: US)
  Receive Date: 20191107
  Receipt Date: 20191119
  Transmission Date: 20200122
  Serious: No
  Sender: FDA-Public Use
  Company Number: US-SAGE-2019SAGE000062

PATIENT

DRUGS (9)
  1. ZULRESSO [Suspect]
     Active Substance: BREXANOLONE
     Dosage: 3.8 ML/HR
     Route: 042
     Dates: start: 20191017, end: 20191018
  2. ZULRESSO [Suspect]
     Active Substance: BREXANOLONE
     Dosage: 5.5 ML/HR
     Dates: start: 20191019, end: 20191019
  3. ZULRESSO [Suspect]
     Active Substance: BREXANOLONE
     Indication: PERINATAL DEPRESSION
     Dosage: 1.9 ML/HR
     Route: 042
     Dates: start: 20191017, end: 20191017
  4. ZULRESSO [Suspect]
     Active Substance: BREXANOLONE
     Dosage: 5.5 ML/HR
     Dates: start: 20191018, end: 20191019
  5. ZULRESSO [Suspect]
     Active Substance: BREXANOLONE
     Dosage: 3.8 ML/HR
     Route: 042
     Dates: start: 20191017, end: 20191017
  6. ZULRESSO [Suspect]
     Active Substance: BREXANOLONE
     Dosage: 5.5 ML/HR
     Route: 042
     Dates: start: 20191018, end: 20191018
  7. ZOLOFT [Concomitant]
     Active Substance: SERTRALINE HYDROCHLORIDE
     Indication: PRODUCT USED FOR UNKNOWN INDICATION
     Dosage: 50 MG, QD
     Route: 065
  8. ZULRESSO [Suspect]
     Active Substance: BREXANOLONE
     Dosage: 3.8 ML/HR
     Route: 042
     Dates: start: 20191019, end: 20191019
  9. ZULRESSO [Suspect]
     Active Substance: BREXANOLONE
     Dosage: 1.9 ML/HR
     Route: 042
     Dates: start: 20191019, end: 20191019

REACTIONS (1)
  - Device programming error [Recovered/Resolved]

NARRATIVE: CASE EVENT DATE: 20191017
